FAERS Safety Report 10388858 (Version 1)
Quarter: 2014Q1

REPORT INFORMATION
  Report Type: Spontaneous
  Country: US (occurrence: None)
  Receive Date: 20140306
  Receipt Date: 20140306
  Transmission Date: 20141002
  Serious: Yes (Hospitalization)
  Sender: FDA-Public Use
  Company Number: 163-21880-13094557

PATIENT
  Age: 70 Year
  Sex: Male

DRUGS (2)
  1. REVLIMID (LENALIDOMIDE) (10 MILLIGRAM, CAPSULES) [Suspect]
     Indication: PLASMA CELL MYELOMA
     Dosage: 10MG, 21 IN 28 D, PO
     Route: 048
     Dates: start: 200811, end: 2013
  2. VELCADE (BORTEZOMIB) [Concomitant]

REACTIONS (5)
  - Drug ineffective [None]
  - Anaemia [None]
  - Bone lesion [None]
  - Neuropathy peripheral [None]
  - Blood immunoglobulin M increased [None]
